FAERS Safety Report 13605504 (Version 1)
Quarter: 2017Q2

REPORT INFORMATION
  Report Type: Spontaneous
  Country: US (occurrence: US)
  Receive Date: 20170602
  Receipt Date: 20170602
  Transmission Date: 20170830
  Serious: No
  Sender: FDA-Public Use
  Company Number: None

PATIENT
  Age: 64 Year
  Sex: Female
  Weight: 66.6 kg

DRUGS (6)
  1. CAMBIA [Suspect]
     Active Substance: DICLOFENAC POTASSIUM
     Indication: MIGRAINE
     Dosage: QUANTITY:1 1 PACKET/SAMPLE;?
     Route: 048
     Dates: start: 20170531, end: 20170531
  2. SYNTHROID [Concomitant]
     Active Substance: LEVOTHYROXINE SODIUM
  3. ONE-A-DAY NOS [Concomitant]
     Active Substance: MINERALS\VITAMINS
  4. VALSARTAN. [Concomitant]
     Active Substance: VALSARTAN
  5. CRESTOR [Concomitant]
     Active Substance: ROSUVASTATIN CALCIUM
  6. TOPAMAX [Concomitant]
     Active Substance: TOPIRAMATE

REACTIONS (5)
  - Limb discomfort [None]
  - Urinary tract disorder [None]
  - Bone pain [None]
  - Middle insomnia [None]
  - Anuria [None]

NARRATIVE: CASE EVENT DATE: 20170531
